FAERS Safety Report 7608367-8 (Version None)
Quarter: 2011Q3

REPORT INFORMATION
  Report Type: 
  Country: None (occurrence: None)
  Receive Date: 20110714
  Receipt Date: 20110224
  Transmission Date: 20111222
  Serious: No
  Sender: FDA-Public Use
  Company Number: US-TYCO HEALTHCARE/MALLINCKRODT-T201100516

PATIENT
  Sex: Male

DRUGS (4)
  1. MORPHINE SULFATE [Concomitant]
     Indication: PAIN
     Dosage: 100 NG, UNK
     Route: 048
  2. MULTI-VITAMINS [Concomitant]
     Dosage: 1, QD
     Route: 048
  3. ZYRTEC [Concomitant]
     Indication: HYPERSENSITIVITY
     Dosage: 1 QD
     Route: 048
  4. MORPHINE [Suspect]
     Indication: PAIN
     Dosage: 100 MG, TID
     Route: 048
     Dates: start: 20110216

REACTIONS (2)
  - INCORRECT DOSE ADMINISTERED [None]
  - DRUG INEFFECTIVE [None]
